FAERS Safety Report 21039042 (Version 1)
Quarter: 2022Q3

REPORT INFORMATION
  Report Type: Spontaneous
  Country: US (occurrence: US)
  Receive Date: 20220704
  Receipt Date: 20220704
  Transmission Date: 20221027
  Serious: Yes (Other)
  Sender: FDA-Public Use
  Company Number: US-CIPLA LTD.-2022US04048

PATIENT
  Age: 27 Year
  Sex: Female

DRUGS (8)
  1. ZONISAMIDE [Suspect]
     Active Substance: ZONISAMIDE
     Indication: Epilepsy
     Dosage: 200 (UNITS UNSPECIFIED)
     Route: 065
     Dates: start: 20211101, end: 20211210
  2. DEPAKOTE ER [Suspect]
     Active Substance: DIVALPROEX SODIUM
     Indication: Epilepsy
     Dosage: 1000
     Route: 065
     Dates: start: 20211101, end: 20211203
  3. CANNABIDIOL [Suspect]
     Active Substance: CANNABIDIOL
     Indication: Product used for unknown indication
     Dosage: 5 MIL
     Route: 065
     Dates: start: 20211101, end: 20211203
  4. ZONISAMIDE [Suspect]
     Active Substance: ZONISAMIDE
     Indication: Epilepsy
     Dosage: 100 (UNITS UNSPECIFIED)
     Route: 065
     Dates: start: 20211210, end: 20211220
  5. ZONISAMIDE [Suspect]
     Active Substance: ZONISAMIDE
     Dosage: 200 (UNITS UNSPECIFIED)
     Route: 065
     Dates: start: 20211210, end: 20211220
  6. ZONISAMIDE [Suspect]
     Active Substance: ZONISAMIDE
     Dosage: 300 (UNITS UNSPECIFIED)
     Route: 065
     Dates: start: 20211210, end: 20211220
  7. CANNABIS SATIVA SUBSP. INDICA TOP [Suspect]
     Active Substance: CANNABIS SATIVA SUBSP. INDICA TOP
     Indication: Product used for unknown indication
     Dosage: UNK
     Dates: start: 20211101, end: 20211203
  8. TETRAHYDROCANNABINOL UNSPECIFIED\HERBALS [Suspect]
     Active Substance: HERBALS\TETRAHYDROCANNABINOL UNSPECIFIED
     Indication: Product used for unknown indication
     Dosage: 200 MIL EACH DAILY
     Route: 065
     Dates: start: 20211101, end: 20211203

REACTIONS (2)
  - Abortion spontaneous [Unknown]
  - Exposure during pregnancy [Unknown]
